FAERS Safety Report 5036594-5 (Version None)
Quarter: 2006Q2

REPORT INFORMATION
  Report Type: 
  Country: None (occurrence: None)
  Receive Date: 20060531
  Receipt Date: 20060330
  Transmission Date: 20061013
  Serious: No
  Sender: FDA-Public Use
  Company Number: PHEH2006US04251

PATIENT
  Age: 12 Year
  Sex: Male

DRUGS (2)
  1. EXJADE [Suspect]
     Dosage: 500 MG, QD
     Dates: start: 20060113
  2. CONCERTA [Concomitant]

REACTIONS (4)
  - CRYING [None]
  - FATIGUE [None]
  - FORMICATION [None]
  - PRURITUS [None]
